FAERS Safety Report 4766465-0 (Version None)
Quarter: 2005Q3

REPORT INFORMATION
  Report Type: 
  Country: None (occurrence: None)
  Receive Date: 20050909
  Receipt Date: 20050901
  Transmission Date: 20060218
  Serious: Yes (Other)
  Sender: FDA-Public Use
  Company Number: 2005098993

PATIENT
  Sex: Female

DRUGS (5)
  1. DOSTINEX [Suspect]
     Indication: HYPERPROLACTINAEMIA
     Dosage: 0.25 MG (0.5 MG, EVERY WEEK), ORAL
     Route: 048
     Dates: start: 20041001
  2. NEXIUM [Concomitant]
  3. FOSAMAX [Concomitant]
  4. CHONDROITIN/ GLUCOSAMINE (CHONDROITIN, GLUCOSAMINE) [Concomitant]
  5. CALCIUM D3 ^STADA^ (CALCIUM, COLECALCIFEROL) [Concomitant]

REACTIONS (2)
  - DIARRHOEA [None]
  - VARICOSE VEIN [None]
